FAERS Safety Report 9909816 (Version 2)
Quarter: 2014Q2

REPORT INFORMATION
  Report Type: Spontaneous
  Country: CZ (occurrence: CZ)
  Receive Date: 20140219
  Receipt Date: 20140428
  Transmission Date: 20141212
  Serious: Yes (Life-Threatening, Hospitalization, Disabling)
  Sender: FDA-Public Use
  Company Number: CZ-B.I. PHARMACEUTICALS,INC./RIDGEFIELD-2014-BI-07140CZ

PATIENT
  Age: 78 Year
  Sex: Male

DRUGS (8)
  1. PRADAXA [Suspect]
     Indication: ATRIAL FIBRILLATION
     Dosage: 220 MG
     Route: 048
  2. CORYOL (BETA BLOCKER) [Concomitant]
     Route: 065
  3. FUROSESE (FUROSEMIDUM) [Concomitant]
     Route: 065
  4. MILURIT (ALLOPURINOL) [Concomitant]
     Route: 065
  5. NEUROL [Concomitant]
     Route: 048
  6. GOPTEN (TRANDOLAPRIL) [Concomitant]
     Route: 065
  7. VEROSPIRON (SPIRONOLACTON) [Concomitant]
     Route: 065
  8. SIOFOR (METFORMIN) [Concomitant]
     Route: 065

REACTIONS (1)
  - Ischaemic stroke [Recovered/Resolved]
